FAERS Safety Report 9774975 (Version 1)
Quarter: 2013Q4

REPORT INFORMATION
  Report Type: Spontaneous
  Country: US (occurrence: US)
  Receive Date: 20131220
  Receipt Date: 20131220
  Transmission Date: 20140711
  Serious: Yes (Hospitalization, Other)
  Sender: FDA-Public Use
  Company Number: US-ASTRAZENECA-2013SE91510

PATIENT
  Age: 81 Year
  Sex: Female
  Weight: 32.7 kg

DRUGS (9)
  1. SYMBICORT [Suspect]
     Indication: EMPHYSEMA
     Dosage: 160/4.5, 2 PUFFS BID
     Route: 055
  2. SYMBICORT [Suspect]
     Indication: CHRONIC OBSTRUCTIVE PULMONARY DISEASE
     Dosage: 160/4.5, 2 PUFFS BID
     Route: 055
  3. SYMBICORT [Suspect]
     Indication: EMPHYSEMA
     Dosage: 160/4.5, 3 PUFFS BID
     Route: 055
  4. SYMBICORT [Suspect]
     Indication: CHRONIC OBSTRUCTIVE PULMONARY DISEASE
     Dosage: 160/4.5, 3 PUFFS BID
     Route: 055
  5. SYMBICORT [Suspect]
     Indication: EMPHYSEMA
     Dosage: 80/4.5, 2 PUFFS BID
     Route: 055
  6. SYMBICORT [Suspect]
     Indication: CHRONIC OBSTRUCTIVE PULMONARY DISEASE
     Dosage: 80/4.5, 2 PUFFS BID
     Route: 055
  7. LISINOPRIL [Suspect]
     Indication: BLOOD PRESSURE ABNORMAL
     Route: 048
     Dates: start: 2012
  8. PLAVIX [Concomitant]
     Indication: ANTICOAGULANT THERAPY
  9. VENTOLIN [Concomitant]

REACTIONS (8)
  - Dyspnoea [Unknown]
  - Hypoxia [Unknown]
  - Arterial occlusive disease [Unknown]
  - Lymph gland infection [Unknown]
  - Dysphonia [Not Recovered/Not Resolved]
  - Drug ineffective [Unknown]
  - Intentional drug misuse [Unknown]
  - Incorrect product storage [Unknown]
